FAERS Safety Report 18721916 (Version 8)
Quarter: 2022Q1

REPORT INFORMATION
  Report Type: Spontaneous
  Country: US (occurrence: US)
  Receive Date: 20210111
  Receipt Date: 20220209
  Transmission Date: 20220424
  Serious: Yes (Hospitalization)
  Sender: FDA-Public Use
  Company Number: US-BIOGEN-2021BI00964885

PATIENT
  Age: 60 Year
  Sex: Female

DRUGS (17)
  1. TECFIDERA [Suspect]
     Active Substance: DIMETHYL FUMARATE
     Indication: Multiple sclerosis
     Dosage: TAKE (120MG) 1 CAPSULE BY MOUTH TWICE DAILY FOR 7 DAYS, THEN (240MG) 1 CAPSULE TWICE DAILY THEREA...
     Route: 048
     Dates: start: 20201211, end: 20201217
  2. TECFIDERA [Suspect]
     Active Substance: DIMETHYL FUMARATE
     Route: 048
     Dates: start: 20201218, end: 20210101
  3. TECFIDERA [Suspect]
     Active Substance: DIMETHYL FUMARATE
     Dosage: TECFIDERA 120 MG 1 CAP BID WEEK ONE, TECFIDERA 120 MG 1 CAP IN THE MORNING AND 240 MG IN THE EVEN...
     Route: 048
     Dates: start: 20210104, end: 20210112
  4. TECFIDERA [Suspect]
     Active Substance: DIMETHYL FUMARATE
     Dosage: TECFIDERA 120 MG 1 CAP BID WEEK ONE, TECFIDERA 120 MG 1 CAP IN THE MORNING AND 240 MG IN THE EVEN...
     Route: 048
  5. TECFIDERA [Suspect]
     Active Substance: DIMETHYL FUMARATE
     Dosage: TECFIDERA 120 MG 1 CAP BID WEEK ONE, TECFIDERA 120 MG 1 CAP IN THE MORNING AND 240 MG IN THE EVEN...
     Route: 048
  6. TECFIDERA [Suspect]
     Active Substance: DIMETHYL FUMARATE
     Dosage: MAINTENANCE DOSE
     Route: 048
     Dates: start: 20210113
  7. TECFIDERA [Suspect]
     Active Substance: DIMETHYL FUMARATE
     Route: 048
     Dates: start: 20201207
  8. TECFIDERA [Suspect]
     Active Substance: DIMETHYL FUMARATE
     Dosage: TAKE (120MG) 1 CAPSULE BY MOUTH TWICE DAILY FOR 7 DAYS, THEN (240MG) 1 CAPSULE TWICE DAILY?THEREA...
     Route: 048
  9. TECFIDERA [Suspect]
     Active Substance: DIMETHYL FUMARATE
     Route: 048
  10. PREDNISONE [Concomitant]
     Active Substance: PREDNISONE
     Indication: Product used for unknown indication
     Route: 065
  11. ALBUTEROL [Concomitant]
     Active Substance: ALBUTEROL
     Indication: Product used for unknown indication
     Route: 065
  12. AMANTADINE HYDROCHLORIDE [Concomitant]
     Active Substance: AMANTADINE HYDROCHLORIDE
     Indication: Product used for unknown indication
     Route: 065
  13. HYDROCHLOROTHIAZIDE [Concomitant]
     Active Substance: HYDROCHLOROTHIAZIDE
     Indication: Product used for unknown indication
     Route: 065
  14. ALPRAZOLAM [Concomitant]
     Active Substance: ALPRAZOLAM
     Indication: Product used for unknown indication
     Route: 065
  15. VITAMIN D [Concomitant]
     Active Substance: VITAMIN D NOS
     Indication: Product used for unknown indication
     Route: 065
  16. ZOFRAN [Concomitant]
     Active Substance: ONDANSETRON HYDROCHLORIDE
     Indication: Product used for unknown indication
     Route: 065
  17. HYOSCYAMINE [Concomitant]
     Active Substance: HYOSCYAMINE
     Indication: Product used for unknown indication
     Route: 065

REACTIONS (23)
  - Headache [Not Recovered/Not Resolved]
  - Chest pain [Unknown]
  - Gastric disorder [Unknown]
  - Dehydration [Unknown]
  - Abdominal pain upper [Unknown]
  - Diarrhoea [Recovered/Resolved]
  - Nausea [Recovered/Resolved]
  - Vomiting [Recovered/Resolved]
  - Muscle spasms [Not Recovered/Not Resolved]
  - Tremor [Unknown]
  - Vision blurred [Unknown]
  - Asthenia [Unknown]
  - Weight decreased [Unknown]
  - Feeling abnormal [Unknown]
  - Fatigue [Unknown]
  - Fibrin D dimer increased [Unknown]
  - Pain in jaw [Unknown]
  - Prescribed underdose [Unknown]
  - Injection site haemorrhage [Unknown]
  - Abdominal discomfort [Not Recovered/Not Resolved]
  - Flushing [Recovered/Resolved]
  - Dyspnoea [Unknown]
  - Gastrointestinal disorder [Unknown]

NARRATIVE: CASE EVENT DATE: 20201201
